FAERS Safety Report 10272613 (Version 2)
Quarter: 2015Q1

REPORT INFORMATION
  Report Type: Spontaneous
  Country: US (occurrence: US)
  Receive Date: 20140702
  Receipt Date: 20150112
  Transmission Date: 20150720
  Serious: Yes (Hospitalization, Other)
  Sender: FDA-Public Use
  Company Number: US-ELI_LILLY_AND_COMPANY-US201406008237

PATIENT
  Age: 58 Year
  Sex: Male

DRUGS (2)
  1. LOPRESSOR [Concomitant]
     Active Substance: METOPROLOL TARTRATE
     Dosage: 50 MG, BID
     Route: 048
  2. AXIRON [Suspect]
     Active Substance: TESTOSTERONE
     Indication: BLOOD TESTOSTERONE DECREASED
     Dosage: 120 MG, QD
     Route: 065
     Dates: start: 20120514, end: 20120621

REACTIONS (2)
  - Deep vein thrombosis [Recovered/Resolved]
  - Pulmonary embolism [Recovered/Resolved]

NARRATIVE: CASE EVENT DATE: 20120621
